FAERS Safety Report 8431483-8 (Version None)
Quarter: 2012Q2

REPORT INFORMATION
  Report Type: 
  Country: None (occurrence: None)
  Receive Date: 20120613
  Receipt Date: 20120529
  Transmission Date: 20120825
  Serious: Yes (Death, Hospitalization)
  Sender: FDA-Public Use
  Company Number: US-BRACCO-008119

PATIENT
  Age: 62 Year
  Sex: Female

DRUGS (3)
  1. MULTIHANCE [Suspect]
     Indication: OEDEMA PERIPHERAL
     Route: 042
     Dates: start: 20120522, end: 20120522
  2. MULTIHANCE [Suspect]
     Indication: PAIN IN EXTREMITY
     Route: 042
     Dates: start: 20120522, end: 20120522
  3. MULTIHANCE [Suspect]
     Indication: NUCLEAR MAGNETIC RESONANCE IMAGING
     Route: 042
     Dates: start: 20120522, end: 20120522

REACTIONS (2)
  - PALPITATIONS [None]
  - DEATH [None]
